FAERS Safety Report 4802490-9 (Version None)
Quarter: 2005Q4

REPORT INFORMATION
  Report Type: 
  Country: None (occurrence: None)
  Receive Date: 20051013
  Receipt Date: 20050929
  Transmission Date: 20060501
  Serious: Yes (Hospitalization, Other)
  Sender: FDA-Public Use
  Company Number: 2005118780

PATIENT
  Age: 74 Year
  Sex: Male
  Weight: 99.7913 kg

DRUGS (8)
  1. CELEBREX [Suspect]
     Indication: ARTHRITIS
     Dates: end: 20020701
  2. ZOMETA [Suspect]
     Indication: HYPERCALCAEMIA
  3. ASPIRIN [Concomitant]
  4. ECOTRIN (ACETYLSALICYLIC ACID) [Concomitant]
  5. PROTONIX [Concomitant]
  6. FOLIC ACID [Concomitant]
  7. LOPRESSOR [Concomitant]
  8. KEFLEX [Concomitant]

REACTIONS (16)
  - ANAEMIA [None]
  - ASTHENIA [None]
  - CARDIAC MURMUR [None]
  - COLITIS [None]
  - DIALYSIS [None]
  - ELECTROCARDIOGRAM ST SEGMENT ELEVATION [None]
  - HYPERTENSION [None]
  - NEPHROPATHY TOXIC [None]
  - PULMONARY OEDEMA [None]
  - PYREXIA [None]
  - RENAL DISORDER [None]
  - RENAL FAILURE [None]
  - RESPIRATORY RATE INCREASED [None]
  - SPUTUM CULTURE POSITIVE [None]
  - STREPTOCOCCAL INFECTION [None]
  - TROPONIN INCREASED [None]
